FAERS Safety Report 5339537-X (Version None)
Quarter: 2007Q2

REPORT INFORMATION
  Report Type: 
  Country: None (occurrence: None)
  Receive Date: 20070404
  Receipt Date: 20061211
  Transmission Date: 20071010
  Serious: Yes (Death)
  Sender: FDA-Public Use
  Company Number: US200611000460

PATIENT
  Sex: Female

DRUGS (6)
  1. ALIMTA [Suspect]
     Indication: NON-SMALL CELL LUNG CANCER
     Dates: start: 20060101, end: 20060101
  2. TAXOTERE [Concomitant]
  3. NAVELBINE [Concomitant]
  4. VITAMIN B12 [Concomitant]
  5. FOLIC ACID [Concomitant]
  6. DEXAMETHASONE TAB [Concomitant]

REACTIONS (2)
  - NON-SMALL CELL LUNG CANCER [None]
  - SKIN EXFOLIATION [None]
